FAERS Safety Report 7517999-7 (Version None)
Quarter: 2011Q2

REPORT INFORMATION
  Report Type: 
  Country: None (occurrence: None)
  Receive Date: 20110602
  Receipt Date: 20110525
  Transmission Date: 20111010
  Serious: Yes (Hospitalization, Other)
  Sender: FDA-Public Use
  Company Number: US-JNJFOC-20110409787

PATIENT
  Sex: Female
  Weight: 58.51 kg

DRUGS (1)
  1. REMICADE [Suspect]
     Indication: COLITIS ULCERATIVE
     Route: 042
     Dates: start: 20110116, end: 20110201

REACTIONS (12)
  - GAIT DISTURBANCE [None]
  - DYSPEPSIA [None]
  - DEPRESSION [None]
  - DECREASED APPETITE [None]
  - RECTAL HAEMORRHAGE [None]
  - ERUCTATION [None]
  - VOMITING [None]
  - ABDOMINAL PAIN UPPER [None]
  - INCREASED UPPER AIRWAY SECRETION [None]
  - COUGH [None]
  - BACTERIAL INFECTION [None]
  - DEHYDRATION [None]
